FAERS Safety Report 7179840-4 (Version None)
Quarter: 2010Q4

REPORT INFORMATION
  Report Type: 
  Country: None (occurrence: None)
  Receive Date: 20101209
  Receipt Date: 20101130
  Transmission Date: 20110411
  Serious: Yes (Death)
  Sender: FDA-Public Use
  Company Number: 2007JP003212

PATIENT
  Age: 66 Year
  Sex: Male

DRUGS (2)
  1. PROGRAF [Suspect]
     Indication: LIVER TRANSPLANT
  2. METHYLPREDNISOLONE [Concomitant]

REACTIONS (4)
  - DISEASE RECURRENCE [None]
  - HEPATIC FIBROSIS [None]
  - HEPATITIS C [None]
  - HEPATITIS CHOLESTATIC [None]
